FAERS Safety Report 7925427-2 (Version None)
Quarter: 2011Q4

REPORT INFORMATION
  Report Type: 
  Country: None (occurrence: None)
  Receive Date: 20111118
  Receipt Date: 20110406
  Transmission Date: 20120403
  Serious: No
  Sender: FDA-Public Use
  Company Number: US-AMGEN-USASP2011015590

PATIENT
  Age: 60 Year
  Sex: Female

DRUGS (1)
  1. ENBREL [Suspect]
     Indication: RHEUMATOID ARTHRITIS
     Dosage: 25 MG, 2 TIMES/WK
     Dates: start: 20000101, end: 20100101

REACTIONS (13)
  - MUSCULOSKELETAL STIFFNESS [None]
  - PAIN [None]
  - WEIGHT DECREASED [None]
  - CYSTITIS [None]
  - OEDEMA PERIPHERAL [None]
  - MUSCULAR WEAKNESS [None]
  - WALKING AID USER [None]
  - INJECTION SITE PAIN [None]
  - BLADDER DISORDER [None]
  - STRESS [None]
  - GASTROINTESTINAL TRACT IRRITATION [None]
  - JOINT RANGE OF MOTION DECREASED [None]
  - DIARRHOEA [None]
